FAERS Safety Report 21273509 (Version 1)
Quarter: 2022Q3

REPORT INFORMATION
  Report Type: Spontaneous
  Country: US (occurrence: None)
  Receive Date: 20220829
  Receipt Date: 20220829
  Transmission Date: 20221027
  Serious: Yes (Hospitalization, Disabling, Other)
  Sender: FDA-Public Use
  Company Number: None

PATIENT
  Age: 67 Year
  Sex: Male

DRUGS (2)
  1. BACLOFEN [Suspect]
     Active Substance: BACLOFEN
  2. BACLOFEN [Suspect]
     Active Substance: BACLOFEN

REACTIONS (6)
  - Device malfunction [None]
  - Drug dose omission by device [None]
  - Muscle tightness [None]
  - Pain [None]
  - Impaired quality of life [None]
  - Device power source issue [None]

NARRATIVE: CASE EVENT DATE: 20220826
